FAERS Safety Report 6031970-6 (Version None)
Quarter: 2009Q1

REPORT INFORMATION
  Report Type: 
  Country: None (occurrence: None)
  Receive Date: 20090107
  Receipt Date: 20081117
  Transmission Date: 20090719
  Serious: Yes (Hospitalization, Other)
  Sender: FDA-Public Use
  Company Number: 001#1#2008-00643

PATIENT
  Sex: Female
  Weight: 52 kg

DRUGS (1)
  1. LACOSAMIDE [Suspect]
     Indication: EPILEPSY
     Dosage: (50 MG BID ORAL)
     Route: 048
     Dates: start: 20081010, end: 20081013

REACTIONS (6)
  - CONDITION AGGRAVATED [None]
  - DIPLOPIA [None]
  - FLATULENCE [None]
  - GRAND MAL CONVULSION [None]
  - PARTIAL SEIZURES [None]
  - VERTIGO [None]
